FAERS Safety Report 9741070 (Version 1)
Quarter: 2013Q4

REPORT INFORMATION
  Report Type: Spontaneous
  Country: US (occurrence: US)
  Receive Date: 20131209
  Receipt Date: 20131209
  Transmission Date: 20140711
  Serious: No
  Sender: FDA-Public Use
  Company Number: US-009507513-1312USA003247

PATIENT
  Age: 2 Year
  Sex: Male

DRUGS (1)
  1. CLARITIN ORAL SOLUTION [Suspect]
     Indication: OROPHARYNGEAL PAIN
     Dosage: 5 MG, BID
     Route: 048
     Dates: start: 20131201, end: 20131201

REACTIONS (3)
  - Overdose [Unknown]
  - Wrong drug administered [Unknown]
  - No adverse event [Unknown]
